FAERS Safety Report 4883129-3 (Version None)
Quarter: 2006Q1

REPORT INFORMATION
  Report Type: 
  Country: None (occurrence: None)
  Receive Date: 20060117
  Receipt Date: 20060117
  Transmission Date: 20060701
  Serious: Yes (Other)
  Sender: FDA-Public Use
  Company Number: None

PATIENT
  Age: 24 Year
  Sex: Female
  Weight: 70.3075 kg

DRUGS (1)
  1. PAXIL [Suspect]
     Indication: MAJOR DEPRESSION
     Dosage: 20MG  2X DAY  PO;  GRADUAL TAPERING OF THIS AMT
     Route: 048
     Dates: start: 20040617, end: 20050420

REACTIONS (3)
  - DRUG DOSE OMISSION [None]
  - HYPOMANIA [None]
  - PARAESTHESIA [None]
